FAERS Safety Report 9654261 (Version 1)
Quarter: 2013Q4

REPORT INFORMATION
  Report Type: Spontaneous
  Country: HU (occurrence: HU)
  Receive Date: 20131029
  Receipt Date: 20131029
  Transmission Date: 20140711
  Serious: Yes (Hospitalization)
  Sender: FDA-Public Use
  Company Number: HU-B.I. PHARMACEUTICALS,INC./RIDGEFIELD-2013-BI-33871HU

PATIENT
  Age: 87 Year
  Sex: Female

DRUGS (2)
  1. TRAJENTA [Suspect]
     Indication: DIABETES MELLITUS
     Dates: start: 201212, end: 201308
  2. GLURENORM [Concomitant]
     Indication: DIABETES MELLITUS
     Dosage: 10 MG
     Route: 048

REACTIONS (1)
  - Myocardial infarction [Recovered/Resolved]
